FAERS Safety Report 6016938-8 (Version None)
Quarter: 2008Q4

REPORT INFORMATION
  Report Type: 
  Country: None (occurrence: None)
  Receive Date: 20081219
  Receipt Date: 20070614
  Transmission Date: 20090506
  Serious: No
  Sender: FDA-Public Use
  Company Number: TEST00207032758

PATIENT
  Age: 1 Day
  Sex: Male
  Weight: 3.5 kg

DRUGS (2)
  1. ANDROGEL [Suspect]
     Indication: ACCIDENTAL EXPOSURE
     Dosage: INTRA-UTERINE
     Route: 015
  2. PRENATAL VITAMIN (PRENATAL VITAMIN) [Concomitant]

REACTIONS (3)
  - ACCIDENTAL EXPOSURE [None]
  - JAUNDICE NEONATAL [None]
  - MATERNAL DRUGS AFFECTING FOETUS [None]
